FAERS Safety Report 20129482 (Version 1)
Quarter: 2021Q4

REPORT INFORMATION
  Report Type: Spontaneous
  Country: US (occurrence: US)
  Receive Date: 20211130
  Receipt Date: 20211130
  Transmission Date: 20220303
  Serious: Yes (Other)
  Sender: FDA-Public Use
  Company Number: US-GLAXOSMITHKLINE-US2021GSK241616

PATIENT
  Sex: Female

DRUGS (3)
  1. ZANTAC [Suspect]
     Active Substance: RANITIDINE HYDROCHLORIDE
     Indication: Gastrooesophageal reflux disease
     Dosage: 150 MG, QD, DAILY RX ZANTAC FROM 7/1990 - 5/1996, THEREAFTER DAILY OTC ZANTAC AND FROM 5/1998 SUPPLE
     Route: 065
     Dates: start: 199007, end: 201910
  2. ZANTAC [Suspect]
     Active Substance: RANITIDINE HYDROCHLORIDE
     Indication: Gastrooesophageal reflux disease
     Dosage: 150 MG, QD, DAILY RX ZANTAC FROM 7/1990 - 5/1996, THEREAFTER DAILY OTC ZANTAC AND FROM 5/1998 SUPPLE
     Route: 065
     Dates: start: 199007, end: 201910
  3. RANITIDINE HYDROCHLORIDE [Suspect]
     Active Substance: RANITIDINE HYDROCHLORIDE
     Indication: Gastrooesophageal reflux disease
     Dosage: 150 MG, OCCASIONAL, OCCASIONAL USE OF EQUATE, RITE AID AND BI-RITE WHERE PRIMARY DAILY USE WAS ZANTA
     Route: 065
     Dates: start: 199805

REACTIONS (1)
  - Breast cancer [Unknown]
